FAERS Safety Report 7656731-3 (Version None)
Quarter: 2011Q3

REPORT INFORMATION
  Report Type: 
  Country: None (occurrence: None)
  Receive Date: 20110801
  Receipt Date: 20110715
  Transmission Date: 20111222
  Serious: Yes (Hospitalization)
  Sender: FDA-Public Use
  Company Number: 2011MA008970

PATIENT
  Age: 3 Year
  Sex: Male

DRUGS (1)
  1. ALBUTEROL SULFATE [Suspect]
     Indication: BRONCHOPULMONARY DYSPLASIA
     Dosage: INH
     Route: 055

REACTIONS (12)
  - ALANINE AMINOTRANSFERASE INCREASED [None]
  - HYPERTONIA [None]
  - ASTHENIA [None]
  - HYPOKALAEMIA [None]
  - SPEECH DISORDER [None]
  - HEAD LAG [None]
  - PNEUMONIA [None]
  - BLOOD CREATINE PHOSPHOKINASE INCREASED [None]
  - GAIT DISTURBANCE [None]
  - EATING DISORDER [None]
  - WEIGHT BEARING DIFFICULTY [None]
  - ASPARTATE AMINOTRANSFERASE INCREASED [None]
